FAERS Safety Report 22650907 (Version 1)
Quarter: 2023Q2

REPORT INFORMATION
  Report Type: Spontaneous
  Country: EG (occurrence: EG)
  Receive Date: 20230628
  Receipt Date: 20230628
  Transmission Date: 20230722
  Serious: Yes (Death, Other)
  Sender: FDA-Public Use
  Company Number: EG-AMGEN-EGYSP2023107324

PATIENT
  Sex: Female

DRUGS (1)
  1. TRASTUZUMAB [Suspect]
     Active Substance: TRASTUZUMAB
     Indication: Metaplastic breast carcinoma
     Route: 065

REACTIONS (3)
  - Death [Fatal]
  - Breast cancer metastatic [Unknown]
  - Metaplastic breast carcinoma [Unknown]
